FAERS Safety Report 20391759 (Version 1)
Quarter: 2022Q1

REPORT INFORMATION
  Report Type: Spontaneous
  Country: US (occurrence: US)
  Receive Date: 20220128
  Receipt Date: 20220128
  Transmission Date: 20220423
  Serious: Yes (Hospitalization)
  Sender: FDA-Public Use
  Company Number: US-BEH-2022141114

PATIENT
  Age: 42 Year
  Sex: Female

DRUGS (2)
  1. PRIVIGEN [Suspect]
     Active Substance: HUMAN IMMUNOGLOBULIN G
     Indication: Dermatomyositis
     Dosage: UNK
     Route: 065
     Dates: start: 20220113
  2. PRIVIGEN [Suspect]
     Active Substance: HUMAN IMMUNOGLOBULIN G
     Indication: Interstitial lung disease

REACTIONS (24)
  - Sepsis [Unknown]
  - Recalled product administered [Unknown]
  - Systemic inflammatory response syndrome [Unknown]
  - Recalled product administered [Unknown]
  - Pyrexia [Unknown]
  - Recalled product administered [Unknown]
  - Tachycardia [Unknown]
  - Recalled product administered [Unknown]
  - Leukocytosis [Unknown]
  - Recalled product administered [Unknown]
  - Pruritus [Unknown]
  - Recalled product administered [Unknown]
  - Nausea [Unknown]
  - Recalled product administered [Unknown]
  - Blood pressure decreased [Unknown]
  - Recalled product administered [Unknown]
  - Vomiting [Unknown]
  - Recalled product administered [Unknown]
  - Asthenia [Unknown]
  - Recalled product administered [Unknown]
  - Hypotension [Unknown]
  - Recalled product administered [Unknown]
  - No adverse event [Unknown]
  - Off label use [Unknown]

NARRATIVE: CASE EVENT DATE: 20220113
